FAERS Safety Report 5879482-4 (Version None)
Quarter: 2008Q3

REPORT INFORMATION
  Report Type: 
  Country: None (occurrence: None)
  Receive Date: 20080912
  Receipt Date: 20080829
  Transmission Date: 20090109
  Serious: Yes (Death)
  Sender: FDA-Public Use
  Company Number: JP-ELI_LILLY_AND_COMPANY-JP200808001771

PATIENT
  Age: 62 Year
  Sex: Female
  Weight: 52 kg

DRUGS (8)
  1. GEMZAR [Suspect]
     Indication: PANCREATIC CARCINOMA STAGE IV
     Dosage: 1400 MG, OTHER
     Route: 042
     Dates: start: 20080725, end: 20080725
  2. GEMZAR [Suspect]
     Dosage: 1150 MG, OTHER
     Route: 042
     Dates: start: 20080808, end: 20080808
  3. LOXONIN [Concomitant]
     Dosage: 60 MG, 3/D
     Route: 048
     Dates: start: 20080704, end: 20080808
  4. MUCOSTA [Concomitant]
     Dosage: 100 MG, 3/D
     Route: 048
     Dates: start: 20080704, end: 20080808
  5. AMARYL [Concomitant]
     Dosage: 3 MG, DAILY (1/D)
     Route: 048
     Dates: start: 20080729, end: 20080808
  6. MAGLAX [Concomitant]
     Dosage: 330 MG, 3/D
     Route: 048
     Dates: start: 20080804, end: 20080808
  7. OXYCONTIN [Concomitant]
     Dosage: 5 MG, 2/D
     Route: 048
     Dates: start: 20080804, end: 20080808
  8. NOVAMIN [Concomitant]
     Dosage: 5 MG, 2/D
     Route: 048
     Dates: start: 20080804, end: 20080808

REACTIONS (2)
  - MYOCARDIAL INFARCTION [None]
  - PLATELET COUNT DECREASED [None]
